FAERS Safety Report 5921850-6 (Version None)
Quarter: 2008Q4

REPORT INFORMATION
  Report Type: 
  Country: None (occurrence: None)
  Receive Date: 20081017
  Receipt Date: 20081007
  Transmission Date: 20090506
  Serious: Yes (Other)
  Sender: FDA-Public Use
  Company Number: GB-ROCHE-590717

PATIENT
  Sex: Female

DRUGS (1)
  1. CELLCEPT [Suspect]
     Route: 065

REACTIONS (3)
  - DISSOCIATIVE DISORDER [None]
  - MEMORY IMPAIRMENT [None]
  - VISUAL IMPAIRMENT [None]
